FAERS Safety Report 18381818 (Version 1)
Quarter: 2020Q4

REPORT INFORMATION
  Report Type: Spontaneous
  Country: US (occurrence: US)
  Receive Date: 20201013
  Receipt Date: 20201013
  Transmission Date: 20210114
  Serious: Yes (Other)
  Sender: FDA-Public Use
  Company Number: None

PATIENT
  Age: 37 Year
  Sex: Female

DRUGS (1)
  1. H.P. ACTHAR [Suspect]
     Active Substance: CORTICOTROPIN
     Dosage: ?          OTHER STRENGTH:80U/ML;OTHER DOSE:80 UNITS;?
     Route: 058

REACTIONS (3)
  - Hypoaesthesia [None]
  - Product prescribing error [None]
  - Product dose omission issue [None]

NARRATIVE: CASE EVENT DATE: 20201009
